FAERS Safety Report 14033047 (Version 8)
Quarter: 2017Q4

REPORT INFORMATION
  Report Type: Spontaneous
  Country: US (occurrence: US)
  Receive Date: 20171003
  Receipt Date: 20171227
  Transmission Date: 20180321
  Serious: Yes (Other)
  Sender: FDA-Public Use
  Company Number: US-PFIZER INC-2017408161

PATIENT
  Age: 74 Year
  Sex: Male
  Weight: 50.52 kg

DRUGS (13)
  1. SUTENT [Suspect]
     Active Substance: SUNITINIB MALATE
     Dosage: 50 MG, CYCLIC (ONCE A DAY 2 WEEKS ON/1 WEEK OFF)
     Dates: start: 20170922
  2. VITAMIN C [Concomitant]
     Active Substance: ASCORBIC ACID
     Dosage: UNK
  3. SUTENT [Suspect]
     Active Substance: SUNITINIB MALATE
     Dosage: 50 MG, CYCLIC (DAILY 1-14 OF 21DAY)
     Route: 048
     Dates: start: 20170824, end: 2017
  4. LEVOTHYROXINE. [Concomitant]
     Active Substance: LEVOTHYROXINE
     Indication: HYPOTHYROIDISM
     Dosage: 75 UG, DAILY
     Route: 048
  5. PREDNISONE. [Concomitant]
     Active Substance: PREDNISONE
     Indication: GOUT
     Dosage: 20 MG, AS NEEDED (DAILY AS NEEDED)
     Route: 048
     Dates: start: 20091209
  6. SUTENT [Suspect]
     Active Substance: SUNITINIB MALATE
     Indication: GASTROINTESTINAL STROMAL TUMOUR
     Dosage: 50 MG, DAILY (CONTINUOUS)
  7. SUTENT [Suspect]
     Active Substance: SUNITINIB MALATE
     Dosage: 50 MG, CYCLIC (QD TWO WEEKS ON AND ONE WEEK OFF/DAILY)
     Route: 048
     Dates: start: 20171016
  8. MILK THISTLE [Concomitant]
     Active Substance: DIETARY SUPPLEMENT\HERBALS\MILK THISTLE
     Dosage: 150 MG, UNK (AS DIRECTED)
     Route: 048
  9. PRILOSEC [Concomitant]
     Active Substance: OMEPRAZOLE MAGNESIUM
     Dosage: UNK
     Route: 048
  10. AMOXICILLIN. [Concomitant]
     Active Substance: AMOXICILLIN
     Indication: PROPHYLAXIS
     Dosage: 250 MG, DAILY
     Route: 048
  11. AMOXICILLIN. [Concomitant]
     Active Substance: AMOXICILLIN
     Indication: URINARY TRACT INFECTION
  12. LEVOTHYROXINE SODIUM. [Concomitant]
     Active Substance: LEVOTHYROXINE SODIUM
     Dosage: 50 UG, DAILY
     Route: 048
  13. VITAMIN D3 [Concomitant]
     Active Substance: CHOLECALCIFEROL
     Dosage: UNK
     Route: 048

REACTIONS (24)
  - Wound [Unknown]
  - Stomatitis [Unknown]
  - Skin exfoliation [Unknown]
  - Weight decreased [Unknown]
  - Chills [Unknown]
  - Dry skin [Unknown]
  - Nasopharyngitis [Unknown]
  - Palmar-plantar erythrodysaesthesia syndrome [Recovered/Resolved]
  - Pain of skin [Unknown]
  - Frustration tolerance decreased [Unknown]
  - Anaemia [Recovering/Resolving]
  - Product use issue [Unknown]
  - Chronic kidney disease [Unknown]
  - Glossodynia [Unknown]
  - Skin fissures [Unknown]
  - Drug dose omission [Unknown]
  - Peripheral swelling [Unknown]
  - Mucosal inflammation [Recovering/Resolving]
  - Fatigue [Not Recovered/Not Resolved]
  - Nephrogenic anaemia [Unknown]
  - Pruritus [Unknown]
  - Nausea [Unknown]
  - Depression [Unknown]
  - Wound haemorrhage [Unknown]

NARRATIVE: CASE EVENT DATE: 2017
